FAERS Safety Report 17618014 (Version 1)
Quarter: 2020Q2

REPORT INFORMATION
  Report Type: Spontaneous
  Country: US (occurrence: US)
  Receive Date: 20200402
  Receipt Date: 20200402
  Transmission Date: 20200713
  Serious: No
  Sender: FDA-Public Use
  Company Number: US-ROCHE-2365056

PATIENT
  Age: 70 Year
  Sex: Male

DRUGS (3)
  1. ERIVEDGE [Suspect]
     Active Substance: VISMODEGIB
     Indication: PULMONARY HYPERTENSION
     Route: 048
     Dates: start: 201905
  2. OPSUMIT [Suspect]
     Active Substance: MACITENTAN
     Indication: PRODUCT USED FOR UNKNOWN INDICATION
     Route: 065
  3. ADEMPAS [Suspect]
     Active Substance: RIOCIGUAT
     Indication: PRODUCT USED FOR UNKNOWN INDICATION
     Route: 065

REACTIONS (4)
  - Intentional product use issue [Unknown]
  - Swelling [Unknown]
  - Off label use [Unknown]
  - Constipation [Unknown]

NARRATIVE: CASE EVENT DATE: 20190519
